FAERS Safety Report 4448403-3 (Version None)
Quarter: 2004Q3

REPORT INFORMATION
  Report Type: 
  Country: None (occurrence: None)
  Receive Date: 20040730
  Receipt Date: 20040219
  Transmission Date: 20050211
  Serious: Yes (Other)
  Sender: FDA-Public Use
  Company Number: 2004-02-1636

PATIENT
  Age: 70 Year
  Sex: Female

DRUGS (1)
  1. LINTRON A (INTERFERON ALFA-2B RECOMBINANT) INJECTABLE [Suspect]
     Indication: RENAL CANCER METASTATIC

REACTIONS (5)
  - CONVULSION [None]
  - DIFFICULTY IN WALKING [None]
  - DIZZINESS [None]
  - GASTROINTESTINAL INFECTION [None]
  - NAUSEA [None]
